FAERS Safety Report 23617298 (Version 2)
Quarter: 2024Q2

REPORT INFORMATION
  Report Type: Spontaneous
  Country: CA (occurrence: CA)
  Receive Date: 20240311
  Receipt Date: 20240408
  Transmission Date: 20240715
  Serious: Yes (Death, Other)
  Sender: FDA-Public Use
  Company Number: CA-AstraZeneca-2024A056320

PATIENT
  Age: 49 Year
  Sex: Female

DRUGS (1)
  1. TRASTUZUMAB DERUXTECAN [Suspect]
     Active Substance: TRASTUZUMAB DERUXTECAN
     Indication: Breast cancer metastatic
     Dosage: 430 MG, ONCE EVERY 3 WK
     Route: 042

REACTIONS (4)
  - Death [Fatal]
  - Respiratory failure [Fatal]
  - Oncologic complication [Fatal]
  - Pneumonia [Fatal]
